FAERS Safety Report 11509843 (Version 1)
Quarter: 2015Q3

REPORT INFORMATION
  Report Type: Spontaneous
  Country: US (occurrence: US)
  Receive Date: 20150915
  Receipt Date: 20150915
  Transmission Date: 20151125
  Serious: No
  Sender: FDA-Public Use
  Company Number: US-JNJFOC-20141220022

PATIENT
  Age: 38 Year
  Sex: Male
  Weight: 74.84 kg

DRUGS (4)
  1. VISINE TEARS DRY EYE RELIEF [Suspect]
     Active Substance: GLYCERIN\HYPROMELLOSES\POLYETHYLENE GLYCOL 400
     Indication: OCULAR HYPERAEMIA
     Dosage: 2 DROPS EACH EYE
     Route: 047
  2. VISINE A [Suspect]
     Active Substance: NAPHAZOLINE HYDROCHLORIDE\PHENIRAMINE MALEATE
     Indication: OCULAR DISCOMFORT
     Dosage: 2 DROPS EACH EYE
     Route: 047
  3. VISINE ADVANCED RELIEF [Suspect]
     Active Substance: DEXTRAN 70\POLYETHYLENE GLYCOL 400\POVIDONE\TETRAHYDROZOLINE HYDROCHLORIDE
     Indication: OCULAR HYPERAEMIA
     Dosage: 2 DROPS EACH EYE
     Route: 047
  4. VISINE TOTALITY MULTI SYMPTOM RELIEF [Suspect]
     Active Substance: GLYCERIN\HYPROMELLOSES\POLYETHYLENE GLYCOL 400\TETRAHYDROZOLINE HYDROCHLORIDE\ZINC SULFATE
     Indication: OCULAR HYPERAEMIA
     Dosage: 2 DROPS EACH EYE
     Route: 047

REACTIONS (4)
  - Ocular hyperaemia [Not Recovered/Not Resolved]
  - Eye irritation [Unknown]
  - Drug ineffective [Unknown]
  - Eye pain [Recovering/Resolving]
